FAERS Safety Report 12537406 (Version 9)
Quarter: 2017Q1

REPORT INFORMATION
  Report Type: Spontaneous
  Country: US (occurrence: US)
  Receive Date: 20160707
  Receipt Date: 20170313
  Transmission Date: 20170428
  Serious: Yes (Congenital Anomaly, Other)
  Sender: FDA-Public Use
  Company Number: PHHY2015US128706

PATIENT
  Sex: Male

DRUGS (3)
  1. ZOFRAN [Suspect]
     Active Substance: ONDANSETRON HYDROCHLORIDE
     Indication: FOETAL EXPOSURE DURING PREGNANCY
     Dosage: MATERNAL DOSE: 8 MG AND 4 MG
     Route: 064
  2. ZOFRAN [Suspect]
     Active Substance: ONDANSETRON HYDROCHLORIDE
     Indication: FOETAL EXPOSURE DURING PREGNANCY
     Dosage: MATERNAL DOSE: 5 TABS AND 10 TABS
     Route: 064
  3. ONDANSETRON [Suspect]
     Active Substance: ONDANSETRON
     Indication: FOETAL EXPOSURE DURING PREGNANCY
     Dosage: MATERNAL DOSE: 10 TABS
     Route: 064

REACTIONS (17)
  - Pain [Unknown]
  - Left-to-right cardiac shunt [Unknown]
  - Renal impairment [Unknown]
  - Single functional kidney [Unknown]
  - Arthralgia [Unknown]
  - Anhedonia [Unknown]
  - Anxiety [Unknown]
  - Injury [Unknown]
  - Atrial septal defect [Unknown]
  - Foetal exposure during pregnancy [Unknown]
  - Psoriasis [Unknown]
  - Renal aplasia [Unknown]
  - Congenital vas deferens absence [Unknown]
  - Renal injury [Unknown]
  - Asthma [Unknown]
  - Left ventricular dilatation [Unknown]
  - Developmental delay [Unknown]
